FAERS Safety Report 16331595 (Version 2)
Quarter: 2019Q2

REPORT INFORMATION
  Report Type: Spontaneous
  Country: SE (occurrence: SE)
  Receive Date: 20190520
  Receipt Date: 20190523
  Transmission Date: 20190711
  Serious: Yes (Hospitalization)
  Sender: FDA-Public Use
  Company Number: SE-PFIZER INC-2019204700

PATIENT
  Age: 70 Year
  Sex: Female

DRUGS (6)
  1. TRASTUZUMAB. [Suspect]
     Active Substance: TRASTUZUMAB
     Indication: BREAST CANCER RECURRENT
     Dosage: UNK, CYCLIC (ADJUVANT CHEMOTHERAPY)
  2. PERTUZUMAB. [Suspect]
     Active Substance: PERTUZUMAB
     Indication: BREAST CANCER RECURRENT
     Dosage: UNK, CYCLIC (ADJUVANT CHEMOTHERAPY)
  3. GRANULOCYTE COLONY STIMULATING FACTOR [Concomitant]
     Active Substance: GRANULOCYTE COLONY-STIMULATING FACTOR NOS
     Indication: PROPHYLAXIS
     Dosage: UNK
  4. DOCETAXEL. [Suspect]
     Active Substance: DOCETAXEL
     Indication: BREAST CANCER RECURRENT
     Dosage: UNK, CYCLIC (ADJUVANT CHEMOTHERAPY)
  5. LEVOTHYROXINE. [Concomitant]
     Active Substance: LEVOTHYROXINE
     Indication: HYPOTHYROIDISM
     Dosage: UNK
  6. FILGRASTIM [Concomitant]
     Active Substance: FILGRASTIM
     Indication: BREAST CANCER
     Dosage: UNK

REACTIONS (1)
  - Febrile neutropenia [Recovering/Resolving]
